FAERS Safety Report 12900187 (Version 1)
Quarter: 2016Q4

REPORT INFORMATION
  Report Type: Spontaneous
  Country: CA (occurrence: CA)
  Receive Date: 20161101
  Receipt Date: 20161101
  Transmission Date: 20170207
  Serious: Yes (Death)
  Sender: FDA-Public Use
  Company Number: CA-ACTELION-A-NJ2016-144773

PATIENT
  Age: 65 Year
  Sex: Male

DRUGS (5)
  1. LASIX [Concomitant]
     Active Substance: FUROSEMIDE
  2. METOLAZONE. [Concomitant]
     Active Substance: METOLAZONE
  3. TRACLEER [Suspect]
     Active Substance: BOSENTAN
     Indication: PULMONARY HYPERTENSION
     Dosage: UNK, BID
     Route: 048
  4. CARIPUL [Concomitant]
     Active Substance: EPOPROSTENOL
     Indication: PULMONARY HYPERTENSION
     Route: 042
  5. SPIRONOLACTONE. [Concomitant]
     Active Substance: SPIRONOLACTONE

REACTIONS (1)
  - Death [Fatal]
